FAERS Safety Report 15864182 (Version 1)
Quarter: 2019Q1

REPORT INFORMATION
  Report Type: Spontaneous
  Country: JP (occurrence: JP)
  Receive Date: 20190124
  Receipt Date: 20190124
  Transmission Date: 20190417
  Serious: Yes (Other)
  Sender: FDA-Public Use
  Company Number: JP-PFIZER INC-2019026408

PATIENT
  Age: 4 Decade
  Sex: Female

DRUGS (3)
  1. SYCREST [Concomitant]
     Active Substance: ASENAPINE MALEATE
  2. RISPERIDONE. [Concomitant]
     Active Substance: RISPERIDONE
  3. EFFEXOR [Suspect]
     Active Substance: VENLAFAXINE HYDROCHLORIDE
     Indication: DEPRESSION
     Dosage: 75 UNK, UNK

REACTIONS (1)
  - Intentional self-injury [Unknown]
